FAERS Safety Report 6216240-5 (Version None)
Quarter: 2009Q2

REPORT INFORMATION
  Report Type: 
  Country: None (occurrence: None)
  Receive Date: 20090605
  Receipt Date: 20090528
  Transmission Date: 20091009
  Serious: Yes (Congenital Anomaly)
  Sender: FDA-Public Use
  Company Number: A0788865A

PATIENT

DRUGS (6)
  1. LAMOTRIGINE [Suspect]
     Indication: EPILEPSY
     Dosage: 50MG PER DAY
  2. SERTRALINE HCL [Concomitant]
  3. VISTARIL [Concomitant]
  4. FIORICET [Concomitant]
  5. ZANTAC [Concomitant]
  6. MARIJUANA [Concomitant]

REACTIONS (2)
  - CLEFT LIP [None]
  - DRUG EXPOSURE DURING PREGNANCY [None]
